FAERS Safety Report 8829584 (Version 1)
Quarter: 2012Q4

REPORT INFORMATION
  Report Type: 
  Country: US (occurrence: US)
  Receive Date: 20121008
  Receipt Date: 20121008
  Transmission Date: 20130627
  Serious: Yes (Death)
  Sender: FDA-Public Use
  Company Number: US-ROCHE-1130766

PATIENT
  Sex: Female

DRUGS (6)
  1. RITUXAN [Suspect]
     Indication: ANAEMIA HAEMOLYTIC AUTOIMMUNE
     Route: 065
  2. RITUXAN [Suspect]
     Indication: OFF LABEL USE
  3. TAMOXIFEN [Concomitant]
  4. PREDNISONE [Concomitant]
     Route: 065
     Dates: start: 2002
  5. EPOGEN [Concomitant]
  6. THALIDOMIDE [Concomitant]

REACTIONS (1)
  - Death [Fatal]
